FAERS Safety Report 20424902 (Version 1)
Quarter: 2022Q1

REPORT INFORMATION
  Report Type: Report from Study
  Country: CA (occurrence: CA)
  Receive Date: 20220204
  Receipt Date: 20220204
  Transmission Date: 20220423
  Serious: No
  Sender: FDA-Public Use
  Company Number: CA-EXELIXIS-CABO-21037908

PATIENT
  Sex: Male

DRUGS (1)
  1. CABOMETYX [Suspect]
     Active Substance: CABOZANTINIB S-MALATE
     Indication: Renal cell carcinoma
     Dosage: 60 MG, QD
     Route: 048
     Dates: start: 20200622, end: 20210223

REACTIONS (5)
  - Blister [Unknown]
  - Localised infection [Unknown]
  - Osteomyelitis [Unknown]
  - Impaired healing [Unknown]
  - Malignant neoplasm progression [Unknown]
